FAERS Safety Report 19659618 (Version 1)
Quarter: 2021Q3

REPORT INFORMATION
  Report Type: Report from Study
  Country: None (occurrence: US)
  Receive Date: 20210804
  Receipt Date: 20210804
  Transmission Date: 20211014
  Serious: Yes (Other)
  Sender: FDA-Public Use
  Company Number: US-ABBVIE-21K-163-3970266-00

PATIENT
  Sex: Female

DRUGS (1)
  1. RINVOQ [Suspect]
     Active Substance: UPADACITINIB
     Indication: RHEUMATOID ARTHRITIS
     Route: 048

REACTIONS (17)
  - Cerebral artery stenosis [Not Recovered/Not Resolved]
  - Therapeutic response unexpected [Unknown]
  - Arthralgia [Not Recovered/Not Resolved]
  - Interstitial lung disease [Recovering/Resolving]
  - Bursitis [Recovering/Resolving]
  - Renal failure [Not Recovered/Not Resolved]
  - Tendonitis [Recovering/Resolving]
  - Feeling abnormal [Not Recovered/Not Resolved]
  - Deafness [Recovering/Resolving]
  - Urinary tract infection [Recovered/Resolved]
  - Disorientation [Not Recovered/Not Resolved]
  - Ear disorder [Recovering/Resolving]
  - Hyperhidrosis [Recovered/Resolved]
  - Narcolepsy [Not Recovered/Not Resolved]
  - Myalgia [Not Recovered/Not Resolved]
  - Dizziness [Unknown]
  - Therapeutic product effect delayed [Unknown]

NARRATIVE: CASE EVENT DATE: 2020
